FAERS Safety Report 4439124-1 (Version None)
Quarter: 2004Q3

REPORT INFORMATION
  Report Type: 
  Country: None (occurrence: None)
  Receive Date: 20040831
  Receipt Date: 20040812
  Transmission Date: 20050211
  Serious: Yes (Death)
  Sender: FDA-Public Use
  Company Number: F01200402504

PATIENT
  Age: 66 Year
  Sex: Female

DRUGS (3)
  1. (OXALIPLATIN) - SOLUTION - UNIT DOSE : UNKNOWN [Suspect]
     Indication: COLORECTAL CANCER
     Dosage: INTRAVENOUS NOS
     Route: 042
  2. (CAPECITABINE) - TABLET - UNIT DOSE : UNKNOWN [Suspect]
     Route: 048
  3. DEXAMETHASONE [Concomitant]

REACTIONS (3)
  - CYTOMEGALOVIRUS ENTERITIS [None]
  - DUODENAL ULCER [None]
  - GASTROINTESTINAL HAEMORRHAGE [None]
